FAERS Safety Report 8707596 (Version 2)
Quarter: 2013Q4

REPORT INFORMATION
  Report Type: Spontaneous
  Country: US (occurrence: US)
  Receive Date: 20120805
  Receipt Date: 20131031
  Transmission Date: 20140711
  Serious: No
  Sender: FDA-Public Use
  Company Number: US-009507513-2012SP023130

PATIENT
  Age: 69 Year
  Sex: Female
  Weight: 63.5 kg

DRUGS (4)
  1. CLARITIN-D [Suspect]
     Indication: NASAL CONGESTION
     Dosage: 5 MG, ONCE
     Route: 048
     Dates: start: 20120316
  2. CLARITIN-D [Suspect]
     Indication: MEDICAL OBSERVATION
     Dosage: 5 MG, ONCE
     Route: 048
     Dates: start: 20120316
  3. CLARITIN-D [Suspect]
     Dosage: 5 MG, UNKNOWN
     Route: 048
     Dates: start: 201203, end: 20120318
  4. FOSAMAX [Concomitant]
     Indication: OSTEOPOROSIS
     Dosage: UNK UNK, UNKNOWN

REACTIONS (3)
  - Nasal congestion [Recovered/Resolved]
  - Insomnia [Recovered/Resolved]
  - Drug effect decreased [Recovered/Resolved]
